FAERS Safety Report 20245724 (Version 9)
Quarter: 2025Q1

REPORT INFORMATION
  Report Type: Report from Study
  Country: CA (occurrence: CA)
  Receive Date: 20211229
  Receipt Date: 20250206
  Transmission Date: 20250409
  Serious: Yes (Other)
  Sender: TAKEDA
  Company Number: CA-TAKEDA-2021TUS077344

PATIENT
  Age: 19 Year
  Sex: Female

DRUGS (10)
  1. VEDOLIZUMAB [Suspect]
     Active Substance: VEDOLIZUMAB
     Indication: Colitis ulcerative
  2. VEDOLIZUMAB [Suspect]
     Active Substance: VEDOLIZUMAB
     Dosage: 300 MILLIGRAM, Q4WEEKS
     Dates: start: 20220107
  3. VEDOLIZUMAB [Suspect]
     Active Substance: VEDOLIZUMAB
     Dosage: 300 MILLIGRAM, Q4WEEKS
  4. VEDOLIZUMAB [Suspect]
     Active Substance: VEDOLIZUMAB
     Dosage: 300 MILLIGRAM, Q4WEEKS
  5. VEDOLIZUMAB [Suspect]
     Active Substance: VEDOLIZUMAB
     Dosage: 300 MILLIGRAM, Q4WEEKS
  6. PREDNISONE [Concomitant]
     Active Substance: PREDNISONE
  7. MESALAMINE [Concomitant]
     Active Substance: MESALAMINE
  8. CITALOPRAM [Concomitant]
     Active Substance: CITALOPRAM
  9. CALCIUM [Concomitant]
     Active Substance: CALCIUM
  10. ACCUTANE [Concomitant]
     Active Substance: ISOTRETINOIN

REACTIONS (21)
  - Rectal haemorrhage [Unknown]
  - Haematochezia [Unknown]
  - Colitis ulcerative [Not Recovered/Not Resolved]
  - Concussion [Unknown]
  - Fall [Unknown]
  - Diarrhoea [Recovered/Resolved]
  - Drug ineffective [Unknown]
  - Off label use [Unknown]
  - Viral sinusitis [Recovering/Resolving]
  - Sleep disorder [Not Recovered/Not Resolved]
  - Increased upper airway secretion [Recovering/Resolving]
  - Toothache [Recovering/Resolving]
  - Bronchitis viral [Recovering/Resolving]
  - General physical health deterioration [Recovered/Resolved]
  - Abdominal pain [Unknown]
  - Dizziness [Unknown]
  - Hot flush [Unknown]
  - Nasal congestion [Recovering/Resolving]
  - Night sweats [Not Recovered/Not Resolved]
  - Headache [Recovering/Resolving]
  - Sinusitis [Recovering/Resolving]

NARRATIVE: CASE EVENT DATE: 20220107
